FAERS Safety Report 20013560 (Version 2)
Quarter: 2021Q4

REPORT INFORMATION
  Report Type: Spontaneous
  Country: DK (occurrence: DK)
  Receive Date: 20211029
  Receipt Date: 20211122
  Transmission Date: 20220303
  Serious: Yes (Death, Hospitalization, Other)
  Sender: FDA-Public Use
  Company Number: DK-ACCORD-232214

PATIENT
  Age: 68 Year
  Sex: Female

DRUGS (36)
  1. GEMCITABINE [Suspect]
     Active Substance: GEMCITABINE
     Indication: Diffuse large B-cell lymphoma stage IV
     Dosage: 1870 MILLIGRAM, SINGLE
     Route: 042
     Dates: start: 20210202, end: 20210202
  2. GEMCITABINE [Suspect]
     Active Substance: GEMCITABINE
     Dosage: 1820 MILLIGRAM, SINGLE
     Route: 042
     Dates: start: 20210429, end: 20210429
  3. GEMCITABINE [Suspect]
     Active Substance: GEMCITABINE
     Dosage: 1830 MILLIGRAM, SINGLE
     Route: 042
     Dates: start: 20210223, end: 20210223
  4. GEMCITABINE [Suspect]
     Active Substance: GEMCITABINE
     Dosage: 1810 MILLIGRAM, SINGLE
     Route: 042
     Dates: start: 20210413, end: 20210413
  5. GEMCITABINE [Suspect]
     Active Substance: GEMCITABINE
     Dosage: 1820 MILLIGRAM, SINGLE
     Route: 042
     Dates: start: 20210531, end: 20210531
  6. GEMCITABINE [Suspect]
     Active Substance: GEMCITABINE
     Dosage: 1820 MILLIGRAM, SINGLE
     Route: 042
     Dates: start: 20210312, end: 20210312
  7. GEMCITABINE [Suspect]
     Active Substance: GEMCITABINE
     Dosage: 1810 MILLIGRAM, SINGLE
     Route: 042
     Dates: start: 20210326, end: 20210326
  8. OXALIPLATIN [Suspect]
     Active Substance: OXALIPLATIN
     Indication: Diffuse large B-cell lymphoma stage IV
     Dosage: 182 MILLIGRAM, SINGLE
     Route: 042
     Dates: start: 20210429, end: 20210429
  9. OXALIPLATIN [Suspect]
     Active Substance: OXALIPLATIN
     Dosage: 182 MILLIGRAM, SINGLE
     Route: 042
     Dates: start: 20210531, end: 20210531
  10. OXALIPLATIN [Suspect]
     Active Substance: OXALIPLATIN
     Dosage: 187 MILLIGRAM, SINGLE
     Route: 042
     Dates: start: 20210312, end: 20210312
  11. OXALIPLATIN [Suspect]
     Active Substance: OXALIPLATIN
     Dosage: 181 MILLIGRAM, SINGLE
     Route: 042
     Dates: start: 20210326, end: 20210326
  12. OXALIPLATIN [Suspect]
     Active Substance: OXALIPLATIN
     Dosage: 187 MILLIGRAM, SINGLE
     Route: 042
     Dates: start: 20210202, end: 20210202
  13. OXALIPLATIN [Suspect]
     Active Substance: OXALIPLATIN
     Dosage: 183 MILLIGRAM, SINGLE
     Route: 042
     Dates: start: 20210223, end: 20210223
  14. OXALIPLATIN [Suspect]
     Active Substance: OXALIPLATIN
     Dosage: 182 MILLIGRAM, SINGLE
     Route: 042
     Dates: start: 20210517, end: 20210517
  15. OXALIPLATIN [Suspect]
     Active Substance: OXALIPLATIN
     Dosage: 181 MILLIGRAM, SINGLE
     Route: 042
     Dates: start: 20210413, end: 20210413
  16. PANTOPRAZOLE [Concomitant]
     Active Substance: PANTOPRAZOLE
     Dosage: UNK
     Dates: start: 20200511
  17. ONDANSETRON [Concomitant]
     Active Substance: ONDANSETRON
     Dosage: UNK
     Dates: start: 20210304
  18. ONDANSETRON [Concomitant]
     Active Substance: ONDANSETRON
     Dosage: UNK
     Dates: start: 20210517, end: 20210517
  19. PREDNISOLON                        /00016201/ [Concomitant]
     Dosage: UNK
     Dates: start: 20210514, end: 20210531
  20. ACYCLOVIR [Concomitant]
     Active Substance: ACYCLOVIR
     Dosage: UNK
     Dates: start: 20210215, end: 20210624
  21. ALLOPURINOL [Concomitant]
     Active Substance: ALLOPURINOL
     Dosage: UNK
     Dates: start: 20210517, end: 20210517
  22. BISACODYL [Concomitant]
     Active Substance: BISACODYL
     Dosage: UNK
     Dates: start: 20200916
  23. CETIRIZINE HYDROCHLORIDE [Concomitant]
     Active Substance: CETIRIZINE HYDROCHLORIDE
     Dosage: UNK
     Dates: start: 20210514, end: 20210531
  24. ZOPICLONE [Concomitant]
     Active Substance: ZOPICLONE
     Dosage: UNK
     Dates: start: 20200318
  25. KALIUMCHLORIDE [Concomitant]
     Dosage: UNK
  26. CHOLECALCIFEROL [Concomitant]
     Active Substance: CHOLECALCIFEROL
     Dosage: UNK
     Dates: start: 20200408
  27. CALCIUM CARBONATE [Concomitant]
     Active Substance: CALCIUM CARBONATE
     Dosage: UNK
     Dates: start: 20200402
  28. ACETAMINOPHEN [Concomitant]
     Active Substance: ACETAMINOPHEN
     Dosage: UNK
     Dates: start: 20210514, end: 20210531
  29. ACETAMINOPHEN [Concomitant]
     Active Substance: ACETAMINOPHEN
     Dosage: UNK
     Dates: start: 20210514, end: 20210624
  30. DALTEPARIN [Concomitant]
     Active Substance: DALTEPARIN
     Dosage: UNK
     Dates: start: 20210326, end: 20210525
  31. PEGFILGRASTIM [Concomitant]
     Active Substance: PEGFILGRASTIM
     Dosage: UNK
     Dates: start: 20210520, end: 20210520
  32. FUROSEMID                          /00032601/ [Concomitant]
     Dosage: UNK
     Dates: start: 20210613, end: 20210704
  33. DIGOXIN                            /00545901/ [Concomitant]
     Dosage: UNK
     Dates: start: 20210705, end: 20210706
  34. TOCILIZUMAB [Concomitant]
     Active Substance: TOCILIZUMAB
     Dosage: UNK
     Dates: start: 20210707, end: 20210707
  35. AMIODARONE [Concomitant]
     Active Substance: AMIODARONE
     Dosage: UNK
     Dates: start: 20210706, end: 20210707
  36. FILGRASTIM BS                      /06441101/ [Concomitant]
     Dosage: UNK
     Dates: start: 20210612, end: 20210706

REACTIONS (7)
  - Hepatitis acute [Fatal]
  - Multiple organ dysfunction syndrome [Fatal]
  - Ascites [Not Recovered/Not Resolved]
  - Cytokine release syndrome [Recovered/Resolved]
  - Capillary leak syndrome [Unknown]
  - Pleural effusion [Unknown]
  - Off label use [Unknown]

NARRATIVE: CASE EVENT DATE: 20210606
